FAERS Safety Report 9280073 (Version 1)
Quarter: 2013Q2

REPORT INFORMATION
  Report Type: Spontaneous
  Country: IT (occurrence: IT)
  Receive Date: 20130509
  Receipt Date: 20130509
  Transmission Date: 20140414
  Serious: Yes (Hospitalization)
  Sender: FDA-Public Use
  Company Number: IT-ABBOTT-13X-083-1082959-00

PATIENT
  Age: 2 Year
  Sex: Male
  Weight: 13 kg

DRUGS (1)
  1. CLARITHROMYCIN [Suspect]
     Indication: DERMATITIS INFECTED
     Route: 048
     Dates: start: 20130326, end: 20130327

REACTIONS (4)
  - Cyanosis [Recovered/Resolved]
  - Eyelid oedema [Recovered/Resolved]
  - Livedo reticularis [Recovered/Resolved]
  - Vomiting [Recovered/Resolved]
